FAERS Safety Report 25984640 (Version 1)
Quarter: 2025Q4

REPORT INFORMATION
  Report Type: Spontaneous
  Country: EU (occurrence: None)
  Receive Date: 20251031
  Receipt Date: 20251031
  Transmission Date: 20260118
  Serious: Yes (Other)
  Sender: UCB
  Company Number: EU-UCBSA-2025067302

PATIENT
  Age: 34 Year

DRUGS (3)
  1. VIMPAT [Suspect]
     Active Substance: LACOSAMIDE
     Indication: Epilepsy
     Dosage: 150 MILLIGRAM, 2X/DAY (BID)
  2. HYPERICUM PERFORATUM EXTRACT [Suspect]
     Active Substance: HYPERICUM PERFORATUM EXTRACT
     Indication: Product used for unknown indication
     Dosage: UNK
  3. LAMOTRIGINE [Concomitant]
     Active Substance: LAMOTRIGINE
     Indication: Product used for unknown indication
     Dosage: UNK

REACTIONS (8)
  - Chronic kidney disease [Unknown]
  - Seizure [Unknown]
  - Papillary renal cell carcinoma [Unknown]
  - Lymphadenectomy [Unknown]
  - Nephrectomy [Unknown]
  - Enteritis [Unknown]
  - Illness anxiety disorder [Unknown]
  - Anxiety [Unknown]
